FAERS Safety Report 6049174-X (Version None)
Quarter: 2009Q1

REPORT INFORMATION
  Report Type: 
  Country: None (occurrence: None)
  Receive Date: 20090123
  Receipt Date: 20090113
  Transmission Date: 20090719
  Serious: Yes (Other)
  Sender: FDA-Public Use
  Company Number: US-PFIZER INC-2008032325

PATIENT
  Sex: Male
  Weight: 77.098 kg

DRUGS (1)
  1. CHANTIX [Suspect]
     Indication: SMOKING CESSATION THERAPY
     Dosage: UNK
     Dates: start: 20070711

REACTIONS (18)
  - AMNESIA [None]
  - ANOREXIA [None]
  - DEMENTIA ALZHEIMER'S TYPE [None]
  - DEPRESSION [None]
  - DISORIENTATION [None]
  - FATIGUE [None]
  - FEELING ABNORMAL [None]
  - HERPES ZOSTER [None]
  - IMPAIRED WORK ABILITY [None]
  - INSOMNIA [None]
  - MALAISE [None]
  - MOOD SWINGS [None]
  - NAUSEA [None]
  - SCREAMING [None]
  - SUICIDAL IDEATION [None]
  - VOMITING [None]
  - WEIGHT DECREASED [None]
  - WEIGHT INCREASED [None]
